FAERS Safety Report 8015383-3 (Version None)
Quarter: 2011Q4

REPORT INFORMATION
  Report Type: 
  Country: None (occurrence: None)
  Receive Date: 20111230
  Receipt Date: 20111226
  Transmission Date: 20120403
  Serious: Yes (Life-Threatening, Hospitalization, Other)
  Sender: FDA-Public Use
  Company Number: BE-GENZYME-CLOF-1001980

PATIENT
  Sex: Male
  Weight: 88 kg

DRUGS (12)
  1. IDARUBICIN HCL [Suspect]
     Indication: ACUTE MYELOID LEUKAEMIA
     Dosage: 72 MG, UNK
     Route: 042
     Dates: start: 20111215, end: 20111217
  2. HALDOL [Concomitant]
     Indication: HICCUPS
     Dosage: 15 DROPS, UNK
     Route: 048
     Dates: start: 20111218, end: 20111224
  3. RIOPAN [Concomitant]
     Indication: PROPHYLAXIS AGAINST GASTROINTESTINAL ULCER
     Dosage: 800 MG, UNK
     Route: 048
     Dates: start: 20111218, end: 20111224
  4. CYTARABINE [Suspect]
     Indication: ACUTE MYELOID LEUKAEMIA
     Dosage: 2800 MG, UNK
     Route: 042
     Dates: start: 20111215, end: 20111221
  5. EVOLTRA [Suspect]
     Indication: ACUTE MYELOID LEUKAEMIA
     Dosage: 100 MG, UNK
     Route: 042
     Dates: start: 20111215, end: 20111219
  6. LITICAN [Concomitant]
     Indication: NAUSEA
     Dosage: 300 MG, UNK
     Route: 042
     Dates: start: 20111215, end: 20111224
  7. AMBISOME [Concomitant]
     Indication: ANTIFUNGAL PROPHYLAXIS
     Dosage: 300 MG, UNK
     Route: 042
     Dates: start: 20111221, end: 20111223
  8. MAXIPIME [Concomitant]
     Indication: FEBRILE NEUTROPENIA
     Dosage: 6 G, UNK
     Route: 042
     Dates: start: 20111221, end: 20111224
  9. CHLORPROMAZINE [Concomitant]
     Indication: HICCUPS
     Dosage: 75 MG, UNK
     Route: 048
     Dates: start: 20111221, end: 20111222
  10. ZOFRAN [Concomitant]
     Indication: NAUSEA
     Dosage: 24 MG, UNK
     Route: 042
     Dates: start: 20111213, end: 20111224
  11. FRAXIPARINE [Concomitant]
     Indication: THROMBOSIS PROPHYLAXIS
     Dosage: 0.6 ML, TIW
     Route: 058
     Dates: start: 20111214, end: 20111218
  12. TRANXENE [Concomitant]
     Indication: ANXIETY
     Dosage: 20 MG, UNK
     Route: 042
     Dates: start: 20111219, end: 20111224

REACTIONS (2)
  - OESOPHAGEAL HAEMORRHAGE [None]
  - SEPTIC SHOCK [None]
